FAERS Safety Report 23623812 (Version 1)
Quarter: 2024Q1

REPORT INFORMATION
  Report Type: Spontaneous
  Country: IT (occurrence: IT)
  Receive Date: 20240312
  Receipt Date: 20240312
  Transmission Date: 20240409
  Serious: Yes (Other)
  Sender: FDA-Public Use
  Company Number: None

PATIENT

DRUGS (1)
  1. XCOPRI [Suspect]
     Active Substance: CENOBAMATE
     Indication: Partial seizures
     Dosage: 100 MILLIGRAM
     Route: 048
     Dates: start: 202303

REACTIONS (2)
  - Ocular hypertension [Unknown]
  - Vision blurred [Unknown]

NARRATIVE: CASE EVENT DATE: 20240210
